FAERS Safety Report 12873210 (Version 2)
Quarter: 2016Q4

REPORT INFORMATION
  Report Type: Spontaneous
  Country: US (occurrence: US)
  Receive Date: 20161021
  Receipt Date: 20161108
  Transmission Date: 20170207
  Serious: No
  Sender: FDA-Public Use
  Company Number: US-BAYER-2016-200327

PATIENT
  Age: 48 Year
  Sex: Female

DRUGS (2)
  1. MIRENA [Suspect]
     Active Substance: LEVONORGESTREL
     Indication: MENORRHAGIA
     Dosage: 20 MCG/24HR, CONT
     Route: 015
     Dates: start: 201606, end: 201607
  2. MIRENA [Suspect]
     Active Substance: LEVONORGESTREL
     Indication: MENORRHAGIA
     Dosage: 20 MCG/24HR, CONT
     Route: 015
     Dates: start: 201604

REACTIONS (10)
  - Hot flush [None]
  - Hypomenorrhoea [Not Recovered/Not Resolved]
  - Device expulsion [None]
  - Weight increased [Not Recovered/Not Resolved]
  - Device expulsion [None]
  - Hormone level abnormal [Not Recovered/Not Resolved]
  - Impatience [Not Recovered/Not Resolved]
  - Menstruation irregular [None]
  - Feeling abnormal [None]
  - Vulvovaginal dryness [None]

NARRATIVE: CASE EVENT DATE: 201604
